FAERS Safety Report 9881532 (Version 2)
Quarter: 2014Q2

REPORT INFORMATION
  Report Type: Report from Study
  Country: US (occurrence: US)
  Receive Date: 20140207
  Receipt Date: 20140512
  Transmission Date: 20141212
  Serious: Yes (Death)
  Sender: FDA-Public Use
  Company Number: US-SA-2014SA015307

PATIENT
  Age: 59 Year
  Sex: Female
  Weight: 85 kg

DRUGS (8)
  1. LOVENOX [Suspect]
     Indication: HYPERCOAGULATION
     Route: 065
     Dates: start: 20121106, end: 20121230
  2. LOVENOX [Suspect]
     Indication: DEEP VEIN THROMBOSIS
     Route: 065
     Dates: start: 20121106, end: 20121230
  3. LOVENOX [Suspect]
     Indication: PULMONARY EMBOLISM
     Route: 065
     Dates: start: 20121106, end: 20121230
  4. DILAUDID [Concomitant]
  5. OXYCODONE [Concomitant]
  6. ATIVAN [Concomitant]
  7. LASIX [Concomitant]
  8. OMEPRAZOLE [Concomitant]

REACTIONS (1)
  - Death [Fatal]
